FAERS Safety Report 10085848 (Version 2)
Quarter: 2014Q2

REPORT INFORMATION
  Report Type: Spontaneous
  Country: CA (occurrence: None)
  Receive Date: 20140416
  Receipt Date: 20140603
  Transmission Date: 20141212
  Serious: Yes (Death)
  Sender: FDA-Public Use
  Company Number: 2262708

PATIENT
  Age: 46 Year
  Sex: 0
  Weight: 127 kg

DRUGS (5)
  1. BLEOMYCIN SULFATE [Suspect]
     Indication: NEOPLASM MALIGNANT
     Dosage: 1 DAY?INTRAVENOUSS (NOT OTHERWISE SPECIFIED)
     Route: 042
     Dates: start: 201308, end: 20131119
  2. (DACARBAZINE) [Concomitant]
  3. (VINBLASTINE) [Concomitant]
  4. (DOXORUBICIN) [Concomitant]
  5. (GRANISETRON) [Concomitant]

REACTIONS (3)
  - Death [None]
  - Dyspnoea [None]
  - Renal failure [None]
